FAERS Safety Report 7319138-4 (Version None)
Quarter: 2011Q1

REPORT INFORMATION
  Report Type: 
  Country: None (occurrence: None)
  Receive Date: 20110228
  Receipt Date: 20110216
  Transmission Date: 20110831
  Serious: Yes (Other)
  Sender: FDA-Public Use
  Company Number: PHFR2010GB05481

PATIENT
  Sex: Male

DRUGS (2)
  1. CLOZARIL [Suspect]
     Dosage: 25 MG, QD
     Route: 048
  2. CLOZARIL [Suspect]
     Indication: SCHIZOPHRENIA
     Dosage: 87.5 MG, QD
     Route: 048
     Dates: start: 20100406

REACTIONS (4)
  - NEUTROPHIL COUNT INCREASED [None]
  - INCORRECT DOSE ADMINISTERED [None]
  - APPENDICITIS [None]
  - WHITE BLOOD CELL COUNT INCREASED [None]
